FAERS Safety Report 19734642 (Version 1)
Quarter: 2021Q3

REPORT INFORMATION
  Report Type: Spontaneous
  Country: US (occurrence: US)
  Receive Date: 20210823
  Receipt Date: 20210823
  Transmission Date: 20211014
  Serious: Yes (Hospitalization, Other)
  Sender: FDA-Public Use
  Company Number: US-ROCHE-2892652

PATIENT
  Sex: Female
  Weight: 88.53 kg

DRUGS (3)
  1. COVID?19 VACCINE [Concomitant]
  2. XOLAIR [Suspect]
     Active Substance: OMALIZUMAB
     Indication: ASTHMA
     Dosage: LAST DOSE 03/AUG/2021.
     Route: 058
  3. VORICONAZOLE. [Concomitant]
     Active Substance: VORICONAZOLE
     Indication: ASPERGILLUS INFECTION
     Dates: start: 2018

REACTIONS (7)
  - Pneumonia klebsiella [Recovered/Resolved]
  - Bronchopulmonary aspergillosis [Recovered/Resolved]
  - Colitis ulcerative [Not Recovered/Not Resolved]
  - Rib fracture [Recovered/Resolved]
  - Lung hernia [Unknown]
  - Pneumonia [Unknown]
  - Dermatitis [Unknown]

NARRATIVE: CASE EVENT DATE: 2015
